FAERS Safety Report 11828405 (Version 1)
Quarter: 2015Q4

REPORT INFORMATION
  Report Type: Spontaneous
  Country: US (occurrence: US)
  Receive Date: 20151211
  Receipt Date: 20151211
  Transmission Date: 20160305
  Serious: No
  Sender: FDA-Public Use
  Company Number: US-BAUSCH-BL-2015-003409

PATIENT
  Age: 71 Year
  Sex: Female

DRUGS (3)
  1. XENAZINE [Suspect]
     Active Substance: TETRABENAZINE
     Dosage: TWO TABLETS EVERY MORNING, ONE TABLET AT NOON AND ONE TABLET IN THE EVENING
     Route: 048
     Dates: start: 201501
  2. XENAZINE [Suspect]
     Active Substance: TETRABENAZINE
     Indication: HUNTINGTON^S DISEASE
     Route: 048
     Dates: start: 201411
  3. XENAZINE [Suspect]
     Active Substance: TETRABENAZINE
     Dosage: 25 MG IN THE AM, 12.5 MG AT NOON AND 12.5 MG IN THE PM
     Route: 048
     Dates: start: 20150114

REACTIONS (6)
  - Anxiety [Recovered/Resolved]
  - Malaise [Unknown]
  - Nausea [Recovered/Resolved]
  - Vomiting [Recovered/Resolved]
  - Asthenia [Not Recovered/Not Resolved]
  - Psychomotor hyperactivity [Recovered/Resolved]

NARRATIVE: CASE EVENT DATE: 201502
